FAERS Safety Report 6723722 (Version 2)
Quarter: 2013Q4

REPORT INFORMATION
  Report Type: Spontaneous
  Country: US (occurrence: None)
  Receive Date: 20080730
  Receipt Date: 20131011
  Transmission Date: 20140711
  Serious: Yes (Other)
  Sender: FDA-Public Use
  Company Number: 2008S1007021

PATIENT
  Age: 74 Year
  Sex: Male

DRUGS (7)
  1. FLEET PHOSPHO-SODA [Suspect]
     Indication: COLONOSCOPY
     Dosage: PO
     Route: 048
     Dates: start: 200403, end: 200403
  2. HYDRALAZINE (HYDRALAZINE) [Concomitant]
  3. LISINOPRIL (LISINOPRIL) [Concomitant]
  4. ASPIRIN (ACETYLSALICYLIC ACID) [Concomitant]
  5. FUROSEMIDE (FUROSEMIDE) [Concomitant]
  6. VITAMIN  (VITAMINS NOS) [Concomitant]
  7. LIPITOR (ATORVASTATIN CALCIUM) [Concomitant]

REACTIONS (7)
  - Renal failure chronic [None]
  - Renal failure acute [None]
  - Anaemia [None]
  - Decreased appetite [None]
  - Diarrhoea [None]
  - Nausea [None]
  - Asthenia [None]
